APPROVED DRUG PRODUCT: TETRABENAZINE
Active Ingredient: TETRABENAZINE
Strength: 25MG
Dosage Form/Route: TABLET;ORAL
Application: A206686 | Product #001 | TE Code: AB
Applicant: ACTAVIS LABORATORIES FL INC
Approved: Jul 7, 2017 | RLD: No | RS: No | Type: RX